FAERS Safety Report 25426186 (Version 1)
Quarter: 2025Q2

REPORT INFORMATION
  Report Type: Spontaneous
  Country: US (occurrence: US)
  Receive Date: 20250612
  Receipt Date: 20250612
  Transmission Date: 20250717
  Serious: Yes (Death)
  Sender: NOVO NORDISK
  Company Number: US-NOVOPROD-1450600

PATIENT
  Age: 80 Year
  Sex: Male

DRUGS (1)
  1. LEVEMIR [Suspect]
     Active Substance: INSULIN DETEMIR
     Indication: Type 2 diabetes mellitus
     Route: 058
     Dates: start: 20190601, end: 20230601

REACTIONS (3)
  - Chronic obstructive pulmonary disease [Fatal]
  - Pneumonia [Fatal]
  - Cardiac failure acute [Fatal]
